FAERS Safety Report 4420523-9 (Version None)
Quarter: 2004Q3

REPORT INFORMATION
  Report Type: 
  Country: None (occurrence: None)
  Receive Date: 20040809
  Receipt Date: 20040323
  Transmission Date: 20050211
  Serious: No
  Sender: FDA-Public Use
  Company Number: US-GLAXOSMITHKLINE-A0504053A

PATIENT
  Age: 57 Year
  Sex: Female

DRUGS (11)
  1. PAXIL CR [Suspect]
     Dosage: 12.5MG AT NIGHT
     Route: 048
     Dates: start: 20040201
  2. PROTONIX [Concomitant]
  3. LIPITOR [Concomitant]
  4. PREMARIN [Concomitant]
  5. PROVERA [Concomitant]
  6. XANAX [Concomitant]
  7. GLUCOPHAGE [Concomitant]
  8. MULTI-VITAMIN [Concomitant]
  9. CALCIUM [Concomitant]
  10. NASACORT [Concomitant]
  11. AMBIEN [Concomitant]

REACTIONS (1)
  - INSOMNIA [None]
